FAERS Safety Report 16770155 (Version 2)
Quarter: 2019Q4

REPORT INFORMATION
  Report Type: Spontaneous
  Country: US (occurrence: US)
  Receive Date: 20190904
  Receipt Date: 20191007
  Transmission Date: 20200122
  Serious: Yes (Other)
  Sender: FDA-Public Use
  Company Number: US-009507513-1909USA001121

PATIENT
  Age: 25 Year
  Sex: Female
  Weight: 68.03 kg

DRUGS (1)
  1. NEXPLANON [Suspect]
     Active Substance: ETONOGESTREL
     Indication: CONTRACEPTION
     Dosage: 1 IMPLANT (68 MG) ONE TIME, (ARM)
     Route: 059
     Dates: start: 20190319, end: 20190813

REACTIONS (4)
  - Menometrorrhagia [Recovered/Resolved]
  - Mood swings [Unknown]
  - Oligomenorrhoea [Unknown]
  - Uterine haemorrhage [Recovering/Resolving]

NARRATIVE: CASE EVENT DATE: 2019
